FAERS Safety Report 25228784 (Version 1)
Quarter: 2025Q2

REPORT INFORMATION
  Report Type: Spontaneous
  Country: CL (occurrence: CL)
  Receive Date: 20250423
  Receipt Date: 20250423
  Transmission Date: 20250717
  Serious: No
  Sender: BECTON DICKINSON
  Company Number: CL-BECTON DICKINSON-CL-BD-25-000179

PATIENT

DRUGS (1)
  1. CHLORAPREP WITH TINT [Suspect]
     Active Substance: CHLORHEXIDINE GLUCONATE\ISOPROPYL ALCOHOL
     Indication: Product used for unknown indication
     Route: 065

REACTIONS (2)
  - Product container seal issue [Unknown]
  - Product sterility issue [Unknown]

NARRATIVE: CASE EVENT DATE: 20250307
